FAERS Safety Report 23765953 (Version 1)
Quarter: 2024Q2

REPORT INFORMATION
  Report Type: Spontaneous
  Country: SK (occurrence: SK)
  Receive Date: 20240421
  Receipt Date: 20240421
  Transmission Date: 20240716
  Serious: Yes (Other)
  Sender: FDA-Public Use
  Company Number: SK-002147023-NVSC2024SK078406

PATIENT
  Age: 6 Month
  Sex: Male

DRUGS (2)
  1. DABRAFENIB [Suspect]
     Active Substance: DABRAFENIB
     Indication: Astrocytoma, low grade
     Dosage: 5.25 MG/KG, QD
     Route: 065
     Dates: start: 202311
  2. TRAMETINIB [Suspect]
     Active Substance: TRAMETINIB
     Indication: Astrocytoma, low grade
     Dosage: 0.032 MG/KG
     Route: 065
     Dates: start: 202311

REACTIONS (8)
  - Amaurosis [Unknown]
  - Dry skin [Unknown]
  - Impaired healing [Unknown]
  - Psychomotor retardation [Unknown]
  - Nystagmus [Unknown]
  - Hypopituitarism [Unknown]
  - IIIrd nerve disorder [Unknown]
  - Off label use [Recovering/Resolving]
